FAERS Safety Report 16779881 (Version 1)
Quarter: 2019Q3

REPORT INFORMATION
  Report Type: Spontaneous
  Country: US (occurrence: US)
  Receive Date: 20190716
  Receipt Date: 20190716
  Transmission Date: 20191005
  Serious: Yes (Hospitalization)
  Sender: FDA-Public Use
  Company Number: None

PATIENT
  Age: 59 Year
  Sex: Female

DRUGS (10)
  1. FAMOTIDINE. [Concomitant]
     Active Substance: FAMOTIDINE
  2. METOLAZONE. [Concomitant]
     Active Substance: METOLAZONE
  3. OPSUMIT [Suspect]
     Active Substance: MACITENTAN
     Indication: PULMONARY ARTERIAL HYPERTENSION
     Route: 048
     Dates: start: 201710
  4. PAROXETINE. [Concomitant]
     Active Substance: PAROXETINE
  5. DIGOXIN. [Concomitant]
     Active Substance: DIGOXIN
  6. VELETRI [Concomitant]
     Active Substance: EPOPROSTENOL
  7. SPIRONOLACTONE. [Concomitant]
     Active Substance: SPIRONOLACTONE
  8. MORPHINE [Concomitant]
     Active Substance: MORPHINE
  9. FUOSEMIDE [Concomitant]
     Active Substance: FUROSEMIDE
  10. K-TAB [Concomitant]
     Active Substance: POTASSIUM CHLORIDE

REACTIONS (1)
  - Cardiac failure [None]

NARRATIVE: CASE EVENT DATE: 20190613
